FAERS Safety Report 4713697-3 (Version None)
Quarter: 2005Q3

REPORT INFORMATION
  Report Type: 
  Country: None (occurrence: None)
  Receive Date: 20050712
  Receipt Date: 20050627
  Transmission Date: 20060218
  Serious: Yes (Death, Hospitalization, Other)
  Sender: FDA-Public Use
  Company Number: USA050597502

PATIENT
  Age: 81 Year
  Sex: Female

DRUGS (4)
  1. FORTEO [Suspect]
     Indication: OSTEOPOROSIS
     Dates: start: 20041001, end: 20050501
  2. LASIX [Concomitant]
     Indication: OSTEOPOROSIS
     Dates: start: 20041001, end: 20050501
  3. LASIX [Concomitant]
  4. INSULIN [Concomitant]

REACTIONS (3)
  - BLOOD POTASSIUM INCREASED [None]
  - DIALYSIS [None]
  - MALAISE [None]
